FAERS Safety Report 8023493 (Version 6)
Quarter: 2013Q3

REPORT INFORMATION
  Report Type: Spontaneous
  Country: US (occurrence: US)
  Receive Date: 20110706
  Receipt Date: 20130814
  Transmission Date: 20140515
  Serious: Yes (Other)
  Sender: FDA-Public Use
  Company Number: US-ROCHE-786653

PATIENT
  Sex: Female
  Weight: 52.21 kg

DRUGS (2)
  1. ACCUTANE [Suspect]
     Indication: ACNE
     Route: 065
     Dates: start: 199804, end: 199810
  2. ACCUTANE [Suspect]
     Route: 065

REACTIONS (9)
  - Crohn^s disease [Unknown]
  - Colitis [Unknown]
  - Inflammatory bowel disease [Unknown]
  - Injury [Unknown]
  - Intestinal obstruction [Unknown]
  - Anal fissure [Unknown]
  - Anal fistula [Unknown]
  - Irritable bowel syndrome [Unknown]
  - Arthritis [Unknown]
